FAERS Safety Report 7690893-7 (Version None)
Quarter: 2011Q3

REPORT INFORMATION
  Report Type: 
  Country: None (occurrence: None)
  Receive Date: 20110818
  Receipt Date: 20110818
  Transmission Date: 20111222
  Serious: Yes (Life-Threatening, Hospitalization)
  Sender: FDA-Public Use
  Company Number: None

PATIENT
  Age: 57 Year
  Sex: Male
  Weight: 115.21 kg

DRUGS (1)
  1. AZITHROMYCIN [Suspect]
     Indication: OROPHARYNGEAL PAIN
     Dosage: 2 TABLETS
     Route: 048
     Dates: start: 20110811, end: 20110812

REACTIONS (8)
  - THROAT TIGHTNESS [None]
  - PHARYNGEAL OEDEMA [None]
  - PHARYNGITIS [None]
  - COMA [None]
  - OESOPHAGEAL OEDEMA [None]
  - DYSPNOEA [None]
  - BLOOD PRESSURE INCREASED [None]
  - OXYGEN SATURATION DECREASED [None]
